FAERS Safety Report 4799694-0 (Version None)
Quarter: 2005Q4

REPORT INFORMATION
  Report Type: 
  Country: None (occurrence: None)
  Receive Date: 20051013
  Receipt Date: 20050927
  Transmission Date: 20060501
  Serious: Yes (Hospitalization)
  Sender: FDA-Public Use
  Company Number: 2005134549

PATIENT
  Age: 83 Year
  Sex: Male
  Weight: 82 kg

DRUGS (6)
  1. AMLODIPINE [Suspect]
     Indication: ILL-DEFINED DISORDER
     Dosage: 5 MG (5 MG, 1 IN 1 D), ORAL
     Route: 048
  2. BISOPROLOL FUMARATE [Suspect]
     Indication: ILL-DEFINED DISORDER
     Dosage: 2.5 MG, ORAL
     Route: 048
  3. RAMIPRIL [Suspect]
     Indication: ILL-DEFINED DISORDER
     Dosage: 5 MG (2.5 MG, 2 IN 1 D), ORAL
     Route: 048
  4. IKOREL (NICORANDIL) [Suspect]
     Indication: ILL-DEFINED DISORDER
     Dosage: 20 MG (10 MG, 2 IN 1 1 D), ORAL
     Route: 048
  5. KARDEGIC (ACETYLSALICYLATE LYSINE) [Concomitant]
  6. MIXTARD HM (INSULIN, INSULIN INJECTION, ISOPHANE) [Concomitant]

REACTIONS (4)
  - DRUG INTERACTION [None]
  - MALAISE [None]
  - ORTHOSTATIC HYPOTENSION [None]
  - SYNCOPE [None]
